FAERS Safety Report 13305193 (Version 1)
Quarter: 2017Q1

REPORT INFORMATION
  Report Type: Spontaneous
  Country: US (occurrence: US)
  Receive Date: 20170308
  Receipt Date: 20170308
  Transmission Date: 20170428
  Serious: Yes (Life-Threatening, Hospitalization, Other)
  Sender: FDA-Public Use
  Company Number: US-WEST-WARD PHARMACEUTICALS CORP.-US-H14001-17-00547

PATIENT
  Age: 6 Decade
  Sex: Female

DRUGS (9)
  1. OXYCODONE [Suspect]
     Active Substance: OXYCODONE
     Dosage: 90 MG OF MORPHINE EQUIVALENT DAILY DOSE (MEDD)
     Route: 065
  2. BACLOFEN. [Suspect]
     Active Substance: BACLOFEN
     Indication: BACK PAIN
     Dosage: INTRATHECAL PUMP
     Route: 037
  3. OXYCODONE [Suspect]
     Active Substance: OXYCODONE
     Dosage: 90 MG OF MORPHINE EQUIVALENT DAILY DOSE (MEDD)
     Route: 065
  4. BACLOFEN. [Suspect]
     Active Substance: BACLOFEN
     Dosage: INTRATHECAL PUMP;ESCALATED DOSES
     Route: 037
  5. HYDROMORPHONE [Suspect]
     Active Substance: HYDROMORPHONE
     Indication: BACK PAIN
     Dosage: INTRATHECAL PUMP
     Route: 048
  6. OXYCODONE [Suspect]
     Active Substance: OXYCODONE
     Dosage: 90 MG OF MORPHINE EQUIVALENT DAILY DOSE (MEDD)
     Route: 065
  7. OXYCODONE [Suspect]
     Active Substance: OXYCODONE
     Dosage: 90 MG OF MORPHINE EQUIVALENT DAILY DOSE (MEDD)
     Route: 065
  8. HYDROMORPHONE [Suspect]
     Active Substance: HYDROMORPHONE
     Indication: BACK PAIN
     Dosage: INTRATHECAL PUMP
     Route: 037
  9. OXYCODONE [Suspect]
     Active Substance: OXYCODONE
     Indication: BACK PAIN
     Dosage: 90 MG OF MORPHINE EQUIVALENT DAILY DOSE (MEDD)
     Route: 065

REACTIONS (2)
  - Narcotic bowel syndrome [Unknown]
  - Respiratory failure [Unknown]
